FAERS Safety Report 4595565-3 (Version None)
Quarter: 2005Q1

REPORT INFORMATION
  Report Type: 
  Country: None (occurrence: None)
  Receive Date: 20050302
  Receipt Date: 20050216
  Transmission Date: 20050727
  Serious: Yes (Other)
  Sender: FDA-Public Use
  Company Number: FR-JNJFOC-20040501441

PATIENT
  Age: 57 Year
  Sex: Male

DRUGS (5)
  1. REOPRO [Suspect]
     Dosage: 10 UG/MIN OVER A PERIOD OF 12 H
     Route: 042
  2. REOPRO [Suspect]
     Indication: ACUTE MYOCARDIAL INFARCTION
     Route: 042
  3. HEPARIN [Concomitant]
  4. ASPIRIN [Concomitant]
  5. CLOPIDOGREL [Concomitant]

REACTIONS (2)
  - THROMBOCYTOPENIA [None]
  - THROMBOSIS [None]
